FAERS Safety Report 17000222 (Version 1)
Quarter: 2019Q4

REPORT INFORMATION
  Report Type: Spontaneous
  Country: US (occurrence: US)
  Receive Date: 20190925
  Receipt Date: 20190925
  Transmission Date: 20200122
  Serious: Yes (Other)
  Sender: FDA-Public Use
  Company Number: None

PATIENT
  Age: 65 Year
  Sex: Male
  Weight: 68.04 kg

DRUGS (5)
  1. ASPIRIN. [Concomitant]
     Active Substance: ASPIRIN
  2. MULTIVITAMINS [Concomitant]
     Active Substance: VITAMINS
  3. VALSARTAN. [Concomitant]
     Active Substance: VALSARTAN
  4. PROBIOTICS DIGESTIVE ADVANTAGE [Concomitant]
  5. BUPROPION. [Suspect]
     Active Substance: BUPROPION
     Indication: ANXIETY
     Route: 048
     Dates: start: 20150914, end: 20150914

REACTIONS (3)
  - Pain [None]
  - Trigger finger [None]
  - Foot deformity [None]
